FAERS Safety Report 6784523-6 (Version None)
Quarter: 2010Q2

REPORT INFORMATION
  Report Type: 
  Country: None (occurrence: None)
  Receive Date: 20100622
  Receipt Date: 20100618
  Transmission Date: 20101027
  Serious: Yes (Other)
  Sender: FDA-Public Use
  Company Number: TR-BRISTOL-MYERS SQUIBB COMPANY-15154941

PATIENT
  Age: 33 Year
  Sex: Male
  Weight: 105 kg

DRUGS (1)
  1. BARACLUDE [Suspect]
     Indication: HEPATITIS B
     Route: 048
     Dates: start: 20080601

REACTIONS (3)
  - ERYTHEMA [None]
  - RASH PRURITIC [None]
  - SKIN LESION [None]
